FAERS Safety Report 9279033 (Version 1)
Quarter: 2013Q2

REPORT INFORMATION
  Report Type: Spontaneous
  Country: US (occurrence: US)
  Receive Date: 20130508
  Receipt Date: 20130508
  Transmission Date: 20140414
  Serious: Yes (Other)
  Sender: FDA-Public Use
  Company Number: US-JNJFOC-20130416054

PATIENT
  Sex: Female

DRUGS (1)
  1. LISTERINE UNSPECIFIED [Suspect]
     Indication: PRODUCT USED FOR UNKNOWN INDICATION
     Dosage: A BOTTLE AMOUNT
     Route: 048
     Dates: start: 20130425

REACTIONS (3)
  - Depressed level of consciousness [Unknown]
  - Intentional drug misuse [Unknown]
  - Incorrect route of drug administration [Unknown]
